FAERS Safety Report 7332399-0 (Version None)
Quarter: 2011Q1

REPORT INFORMATION
  Report Type: 
  Country: None (occurrence: None)
  Receive Date: 20110304
  Receipt Date: 20110304
  Transmission Date: 20110831
  Serious: Yes (Other)
  Sender: FDA-Public Use
  Company Number: B0703670A

PATIENT
  Age: 68 Year
  Sex: Female

DRUGS (1)
  1. AUGMENTIN (ORAL) [Suspect]
     Route: 048
     Dates: start: 20110202, end: 20110210

REACTIONS (6)
  - JAUNDICE [None]
  - CHROMATURIA [None]
  - CHOLESTASIS [None]
  - ABDOMINAL PAIN UPPER [None]
  - HEPATOCELLULAR INJURY [None]
  - ABDOMINAL PAIN [None]
